FAERS Safety Report 9431320 (Version 1)
Quarter: 2013Q3

REPORT INFORMATION
  Report Type: Spontaneous
  Country: GB (occurrence: GB)
  Receive Date: 20130730
  Receipt Date: 20130730
  Transmission Date: 20140515
  Serious: Yes (Hospitalization)
  Sender: FDA-Public Use
  Company Number: ALCN2013GB000751

PATIENT
  Age: 70 Year
  Sex: Male

DRUGS (17)
  1. CIPROFLOXACIN [Suspect]
     Route: 047
  2. ALENDRONIC ACID [Concomitant]
  3. CALCIUM [Concomitant]
  4. VITAMIN D [Concomitant]
  5. CARBOMER [Concomitant]
  6. DIAZEPAM [Concomitant]
  7. DONEPEZIL [Concomitant]
  8. FERROUS FUMARATE [Concomitant]
  9. ACIFOL//FOLIC ACID [Concomitant]
  10. LEVETIRACETAM [Concomitant]
  11. MACROGOL [Concomitant]
  12. NITROFURANTOIN [Concomitant]
  13. PARACETAMOL [Concomitant]
  14. PREDNISOLONE [Concomitant]
  15. PROCYCLIDINE [Concomitant]
  16. SODIUM VALPROATE [Concomitant]
  17. TRAVATAN [Concomitant]

REACTIONS (1)
  - Convulsion [Recovering/Resolving]
